FAERS Safety Report 9473500 (Version 1)
Quarter: 2013Q3

REPORT INFORMATION
  Report Type: Spontaneous
  Country: US (occurrence: US)
  Receive Date: 20130823
  Receipt Date: 20130823
  Transmission Date: 20140515
  Serious: No
  Sender: FDA-Public Use
  Company Number: US-GALDERMA-US13000359

PATIENT
  Age: 55 Year
  Sex: Female

DRUGS (7)
  1. METROGEL (METRONIDAZOLE) GEL, 1% [Suspect]
     Indication: OFF LABEL USE
     Dosage: 1%
     Route: 061
     Dates: start: 201207
  2. METROGEL (METRONIDAZOLE) GEL, 1% [Suspect]
     Route: 061
  3. SIMVASTATIN [Concomitant]
     Indication: HYPERCHOLESTEROLAEMIA
     Route: 048
  4. DEPAKOTE [Concomitant]
     Indication: BIPOLAR I DISORDER
     Route: 048
  5. DEPAKOTE [Concomitant]
     Indication: SCHIZOAFFECTIVE DISORDER
  6. KLONOPIN [Concomitant]
     Indication: POST-TRAUMATIC STRESS DISORDER
     Route: 048
  7. OMEPRAZOLE [Concomitant]
     Indication: GASTROOESOPHAGEAL REFLUX DISEASE
     Route: 048

REACTIONS (4)
  - Therapeutic response unexpected [Not Recovered/Not Resolved]
  - Intentional drug misuse [Not Recovered/Not Resolved]
  - Skin exfoliation [Not Recovered/Not Resolved]
  - Off label use [Not Recovered/Not Resolved]
